FAERS Safety Report 9981394 (Version 1)
Quarter: 2014Q1

REPORT INFORMATION
  Report Type: Spontaneous
  Country: US (occurrence: None)
  Receive Date: 20140306
  Receipt Date: 20140306
  Transmission Date: 20141002
  Serious: No
  Sender: FDA-Public Use
  Company Number: None

PATIENT
  Age: 29 Year
  Sex: Female
  Weight: 68.04 kg

DRUGS (1)
  1. DEXTROAMPHETAMINE SULFA USP XR [Suspect]
     Indication: ATTENTION DEFICIT/HYPERACTIVITY DISORDER
     Route: 048
     Dates: start: 20140217, end: 20140302

REACTIONS (7)
  - Anxiety [None]
  - Drug ineffective [None]
  - Feeling abnormal [None]
  - Feeling jittery [None]
  - Product quality issue [None]
  - Product substitution issue [None]
  - Therapeutic response unexpected with drug substitution [None]
